FAERS Safety Report 8211514-0 (Version None)
Quarter: 2012Q1

REPORT INFORMATION
  Report Type: 
  Country: None (occurrence: None)
  Receive Date: 20120315
  Receipt Date: 20120305
  Transmission Date: 20120608
  Serious: Yes (Other)
  Sender: FDA-Public Use
  Company Number: MX-BRISTOL-MYERS SQUIBB COMPANY-16443004

PATIENT
  Age: 62 Year
  Sex: Female
  Weight: 97 kg

DRUGS (5)
  1. METFORMIN HCL [Concomitant]
     Indication: DIABETES MELLITUS
     Dosage: TABLET
     Route: 048
  2. IRBESARTAN AND HYDROCHLOROTHIAZIDE [Suspect]
     Indication: HYPERTENSION
     Dosage: 1DF=1TAB
     Route: 048
     Dates: start: 20040101
  3. VICTOZA [Concomitant]
     Indication: DIABETES MELLITUS
     Dosage: 1DF=0.06ML INJECTABLE
     Route: 058
  4. LIVIAL [Concomitant]
     Dosage: 1DF=1TAB
     Route: 048
     Dates: start: 20110101
  5. ATARAX [Concomitant]
     Dosage: 1DF=1TAB
     Route: 048
     Dates: start: 20110101

REACTIONS (2)
  - LIGAMENT SPRAIN [None]
  - FALL [None]
